FAERS Safety Report 8503212-0 (Version None)
Quarter: 2012Q3

REPORT INFORMATION
  Report Type: 
  Country: None (occurrence: None)
  Receive Date: 20120702
  Receipt Date: 20100322
  Transmission Date: 20120928
  Serious: Yes (Hospitalization)
  Sender: FDA-Public Use
  Company Number: BE-008037

PATIENT
  Age: 65 Year
  Sex: Male

DRUGS (2)
  1. OFATUMUMAB (OFATUMUMAB) INJECTION [Suspect]
     Indication: CHRONIC LYMPHOCYTIC LEUKAEMIA
     Dosage: 300 MG AT DAY 1, 1000 MG AT DAY 8 FOLLOWED BY 1000 MG, EVERY 28 DAYS, INTRAVENOUS
     Route: 042
     Dates: start: 20100315, end: 20100323
  2. CHLORAMBUCIL (CHLORAMBUCIL) [Suspect]
     Indication: CHRONIC LYMPHOCYTIC LEUKAEMIA
     Dosage: 10 MG/M2 DAYS 1-7 EVERY 28 DAYS, ORAL
     Route: 048
     Dates: start: 20100315, end: 20100321

REACTIONS (6)
  - ORAL DISORDER [None]
  - CONFUSIONAL STATE [None]
  - FALL [None]
  - AMNESIA [None]
  - PLATELET COUNT DECREASED [None]
  - SUBDURAL HAEMATOMA [None]
